FAERS Safety Report 6249090-4 (Version None)
Quarter: 2009Q2

REPORT INFORMATION
  Report Type: 
  Country: None (occurrence: None)
  Receive Date: 20090624
  Receipt Date: 20090609
  Transmission Date: 20091009
  Serious: Yes (Death)
  Sender: FDA-Public Use
  Company Number: DSJ-2009-01512

PATIENT
  Age: 68 Year
  Sex: Male

DRUGS (7)
  1. OLMESARTAN MEDOXOMIL [Suspect]
     Indication: HYPERTENSION
     Dosage: 20 MG, PER ORAL
     Route: 048
     Dates: start: 20080324, end: 20080529
  2. ANPLAG (SARPOGRELATE HYDROCHLORIDE) [Suspect]
     Indication: DIABETIC GANGRENE
     Dosage: 200 MG (100 MG, 2 IN 1 D), PER ORAL
     Route: 048
     Dates: start: 20080227, end: 20080529
  3. MINOCYCLINE HCL [Suspect]
     Indication: DIABETIC GANGRENE
     Dosage: 200 MG (100 MG, 2 IN 1 D), PER ORAL
     Route: 048
     Dates: start: 20080430, end: 20080529
  4. LEVOFLOXACIN [Concomitant]
  5. AMARYL [Concomitant]
  6. ADONA           (CARBAZOCHROME SODIUM SULFATE) [Concomitant]
  7. METHYCOBAL  (MECOBALAMIN) [Concomitant]

REACTIONS (2)
  - RENAL FAILURE ACUTE [None]
  - SEPSIS [None]
